FAERS Safety Report 15791166 (Version 7)
Quarter: 2019Q2

REPORT INFORMATION
  Report Type: Spontaneous
  Country: DE (occurrence: DE)
  Receive Date: 20190104
  Receipt Date: 20190618
  Transmission Date: 20190711
  Serious: Yes (Death, Other)
  Sender: FDA-Public Use
  Company Number: DE-MYLANLABS-2018M1097878

PATIENT
  Age: 40 Year
  Sex: Female
  Weight: 47 kg

DRUGS (27)
  1. LAMOTRIGINE. [Suspect]
     Active Substance: LAMOTRIGINE
     Indication: PRODUCT USED FOR UNKNOWN INDICATION
     Dosage: 200 MILLIGRAM, QD (DAILY  400 MG MILLIGRAM(S) EVERY DAY)
     Route: 065
  2. LAMOTRIGINE. [Suspect]
     Active Substance: LAMOTRIGINE
     Dosage: 350 MILLIGRAM, QD (ONE AND HALF A TABLET IN THE MORNING, TWO TABLETS IN THE )
     Route: 065
  3. LAMOTRIGINE. [Suspect]
     Active Substance: LAMOTRIGINE
     Dosage: UNK UNK,1X
     Route: 065
  4. CLOBAZAM. [Suspect]
     Active Substance: CLOBAZAM
     Indication: PRODUCT USED FOR UNKNOWN INDICATION
     Dosage: UNK UNK, TOTAL
     Route: 065
  5. LAMOTRIGINE. [Suspect]
     Active Substance: LAMOTRIGINE
     Dosage: 300 MILLIGRAM, QD ONE TABLET IN THE MORNING, TWO TABLETS IN THE
     Route: 065
  6. DIAMOX                             /00016901/ [Suspect]
     Active Substance: ACETAZOLAMIDE
     Dosage: 1 DOSAGE FORM, QD(2 DF DOSAGE FORM EVERY )
     Route: 065
  7. LAMOTRIGINE. [Suspect]
     Active Substance: LAMOTRIGINE
     Dosage: 200 MILLIGRAM, BID
     Route: 065
  8. LEVETIRACETAM. [Suspect]
     Active Substance: LEVETIRACETAM
     Dosage: UNK UNK,1X
     Route: 065
  9. LORAZEPAM. [Suspect]
     Active Substance: LORAZEPAM
     Indication: PRODUCT USED FOR UNKNOWN INDICATION
     Dosage: UNK, PRN
     Route: 065
  10. VIMPAT [Suspect]
     Active Substance: LACOSAMIDE
     Dosage: UNK, BID
     Route: 065
  11. CLONAZEPAM. [Suspect]
     Active Substance: CLONAZEPAM
     Indication: PRODUCT USED FOR UNKNOWN INDICATION
     Dosage: UNK
     Route: 065
  12. LAMOTRIGINE. [Suspect]
     Active Substance: LAMOTRIGINE
     Dosage: 250 MILLIGRAM, QD (100MG, (1 IN MORNING AND 1? IN EVENING;)
     Route: 065
  13. CITALOPRAM [Suspect]
     Active Substance: CITALOPRAM HYDROBROMIDE
     Indication: PRODUCT USED FOR UNKNOWN INDICATION
     Dosage: UNK, TOTAL
     Route: 065
  14. VIMPAT [Suspect]
     Active Substance: LACOSAMIDE
     Indication: PRODUCT USED FOR UNKNOWN INDICATION
     Dosage: 250 MILLIGRAM, QD (ONE TABLET IN THE MORNING, ONE AND HALF A TABLET IN THE )
     Route: 065
  15. LAMOTRIGINE. [Suspect]
     Active Substance: LAMOTRIGINE
     Dosage: 100 MILLIGRAM, QD 9100MG, (1? IN MORNING AND 2 IN EVENING; WEEK 3)
     Route: 065
  16. LAMOTRIGINE. [Suspect]
     Active Substance: LAMOTRIGINE
     Dosage: UNK UNK, BID
     Route: 065
  17. KEPPRA [Suspect]
     Active Substance: LEVETIRACETAM
     Indication: EPILEPSY
     Dosage: 3000 MILLIGRAM, QD (1000 MG, ONE AND HALF A TABLET IN THE MORNING, ONE AND HALF A TABLET IN THE)
     Route: 065
  18. DIAMOX                             /00016901/ [Suspect]
     Active Substance: ACETAZOLAMIDE
     Indication: PRODUCT USED FOR UNKNOWN INDICATION
     Dosage: 2 DOSAGE FORM, QD (DAILY DOSE: 2 DF DOSAGE FORM EVERY DAY)
     Route: 065
  19. LAMOTRIGINE. [Suspect]
     Active Substance: LAMOTRIGINE
     Dosage: ONE TABLET IN THE MORNING, TWO TABLETS IN THE
     Route: 065
  20. VIMPAT [Suspect]
     Active Substance: LACOSAMIDE
     Dosage: 100 MILLIGRAM, QD(100 MG-168 TABLETS, IN THE MORNING AND 1 AND A HALF IN THE )
     Route: 065
  21. ACETAZOLAMIDE. [Suspect]
     Active Substance: ACETAZOLAMIDE
     Indication: PRODUCT USED FOR UNKNOWN INDICATION
     Dosage: 2 DOSAGE FORM, QD ( 1 DF DOSAGE FORM EVERY DAY)
     Route: 065
  22. ACETAZOLAMIDE. [Suspect]
     Active Substance: ACETAZOLAMIDE
     Dosage: 1 DOSAGE FORM, QD( 1 DF DOSAGE FORM EVERY DAY )
     Route: 065
  23. VALDOXAN [Suspect]
     Active Substance: AGOMELATINE
     Dosage: 25 MILLIGRAM(DAILY DOSE: 50 MG MILLIGRAM(S) EVERY DAY UNK )
     Route: 065
  24. LEVETIRACETAM. [Suspect]
     Active Substance: LEVETIRACETAM
     Indication: PRODUCT USED FOR UNKNOWN INDICATION
     Dosage: 1500 MILLIGRAM, BID
     Route: 065
  25. CIPRAMIL                           /00582602/ [Suspect]
     Active Substance: CITALOPRAM HYDROBROMIDE
     Indication: PRODUCT USED FOR UNKNOWN INDICATION
     Dosage: UNK
     Route: 050
  26. VIMPAT [Suspect]
     Active Substance: LACOSAMIDE
     Dosage: UNK, TOTAL
     Route: 065
  27. VALDOXAN [Suspect]
     Active Substance: AGOMELATINE
     Indication: PRODUCT USED FOR UNKNOWN INDICATION
     Dosage: 50 MILLIGRAM, QD (DAILY DOSE: 50 MG MILLIGRAM(S) EVERY DAY) (98 TABLETS; 25 MG)
     Route: 065

REACTIONS (7)
  - Medication error [Unknown]
  - Completed suicide [Fatal]
  - Overdose [Fatal]
  - Drug abuse [Unknown]
  - Poisoning [Fatal]
  - Toxicity to various agents [Fatal]
  - Intentional product misuse [Unknown]
